FAERS Safety Report 15658675 (Version 3)
Quarter: 2019Q1

REPORT INFORMATION
  Report Type: Report from Study
  Country: IE (occurrence: IE)
  Receive Date: 20181126
  Receipt Date: 20190325
  Transmission Date: 20190417
  Serious: Yes (Other)
  Sender: FDA-Public Use
  Company Number: PHHY2018IE020561

PATIENT
  Age: 57 Year
  Sex: Female
  Weight: 96.25 kg

DRUGS (3)
  1. LEE011 [Suspect]
     Active Substance: RIBOCICLIB
     Dosage: 200 MG, QD (ONE TABLET DAILY )
     Route: 048
  2. LEE011 [Suspect]
     Active Substance: RIBOCICLIB
     Indication: BREAST CANCER METASTATIC
     Dosage: 600 MG, QD
     Route: 048
     Dates: start: 20180529
  3. LEE011 [Suspect]
     Active Substance: RIBOCICLIB
     Dosage: 400 MG, QD
     Route: 048
     Dates: start: 20180701, end: 20181018

REACTIONS (10)
  - Hypertension [Recovering/Resolving]
  - Headache [Unknown]
  - Dyspepsia [Recovered/Resolved]
  - Liver function test increased [Unknown]
  - Nausea [Recovering/Resolving]
  - Lower respiratory tract infection [Unknown]
  - Infection [Recovering/Resolving]
  - Back pain [Unknown]
  - Blood count abnormal [Unknown]
  - Neutropenia [Recovered/Resolved]

NARRATIVE: CASE EVENT DATE: 20181018
